FAERS Safety Report 25613002 (Version 1)
Quarter: 2025Q3

REPORT INFORMATION
  Report Type: Spontaneous
  Country: EU (occurrence: EU)
  Receive Date: 20250728
  Receipt Date: 20250728
  Transmission Date: 20251021
  Serious: Yes (Other)
  Sender: ALIMERA
  Company Number: EU-ALIMERA SCIENCES INC.-DE-A16013-25-000257

PATIENT
  Age: 50 Year
  Sex: Male

DRUGS (1)
  1. ILUVIEN [Suspect]
     Active Substance: FLUOCINOLONE ACETONIDE
     Indication: Diabetic retinal oedema
     Dosage: 0.25 MICROGRAM, QD - RIGHT EYE
     Route: 031
     Dates: start: 2017, end: 2017

REACTIONS (3)
  - Choroidal effusion [Recovered/Resolved]
  - Reflux laryngitis [Recovered/Resolved]
  - Visual impairment [Recovered/Resolved]
